FAERS Safety Report 20948390 (Version 1)
Quarter: 2022Q2

REPORT INFORMATION
  Report Type: Spontaneous
  Country: FR (occurrence: FR)
  Receive Date: 20220611
  Receipt Date: 20220611
  Transmission Date: 20220721
  Serious: Yes (Death)
  Sender: FDA-Public Use
  Company Number: None

PATIENT
  Age: 76 Year
  Sex: Male

DRUGS (12)
  1. ALLOPURINOL [Suspect]
     Active Substance: ALLOPURINOL
     Indication: Product used for unknown indication
     Dosage: UNIT DOSE : 300 MG , FREQUENCY TIME : 1 DAYS , THERAPY START DATE : ASKU
     Route: 048
  2. DUTASTERIDE [Suspect]
     Active Substance: DUTASTERIDE
     Indication: Product used for unknown indication
     Dosage: UNIT DOSE : 0.5 MG , FREQUENCY TIME : 1 DAYS , THERAPY START DATE : ASKU
     Route: 048
  3. FUROSEMIDE [Suspect]
     Active Substance: FUROSEMIDE
     Indication: Hypertension
     Dosage: UNIT DOSE : 80 MG , FREQUENCY TIME : 1 DAYS , THERAPY START DATE : ASKU
     Route: 048
  4. PREGABALIN [Suspect]
     Active Substance: PREGABALIN
     Indication: Product used for unknown indication
     Dosage: UNIT DOSE : 25 MG , FREQUENCY TIME : 1 DAYS , THERAPY START DATE : ASKU
     Route: 048
  5. VALACYCLOVIR HYDROCHLORIDE [Suspect]
     Active Substance: VALACYCLOVIR HYDROCHLORIDE
     Indication: Antiviral prophylaxis
     Dosage: UNIT DOSE : 1 GRAM , FREQUENCY TIME : 1 DAYS ,THERAPY START DATE : ASKU
     Route: 048
  6. FLUINDIONE [Suspect]
     Active Substance: FLUINDIONE
     Indication: Atrial fibrillation
     Dosage: THERAPY START DATE : ASKU
     Route: 048
  7. AMITRIPTYLINE HYDROCHLORIDE [Suspect]
     Active Substance: AMITRIPTYLINE HYDROCHLORIDE
     Indication: Product used for unknown indication
     Dosage: FORM STRENGTH : 40 MG/ML , UNIT DOSE : 15 GTT , FREQUENCY TIME : 1 DAYS , THERAPY START DATE : ASKU
     Route: 048
  8. PENICILLIN V [Suspect]
     Active Substance: PENICILLIN V
     Indication: Antibiotic prophylaxis
     Dosage: SEPARABLE TABLET , FORM STRENGTH : 1000000 IU (INTERNATIONAL UNIT) , UNIT DOSE : 2 DF , FREQUENCY TI
     Route: 048
  9. CHOLECALCIFEROL [Suspect]
     Active Substance: CHOLECALCIFEROL
     Indication: Vitamin supplementation
     Dosage: 10,000 IU/ML , UNIT DOSE : 5 GTT , FREQUENCY TIME : 1 DAYS , ORAL SOLUTION IN DROPS , THERAPY START
     Route: 048
  10. COMIRNATY [Suspect]
     Active Substance: TOZINAMERAN
     Indication: COVID-19 immunisation
     Dosage: R1 ,  30 MICROGRAMS/DOSE, DISPERSION FOR INJECTION. MRNA (MODIFIED NUCLEOSIDE) VACCINE AGAINST COVID
     Route: 030
     Dates: start: 20211217, end: 20211217
  11. PREDNISONE [Suspect]
     Active Substance: PREDNISONE
     Indication: Product used for unknown indication
     Dosage: UNIT DOSE : 2MG , FREQUENCY TIME : 1 DAYS , THERAPY START DATE : ASKU
     Route: 048
  12. PROPRANOLOL [Suspect]
     Active Substance: PROPRANOLOL HYDROCHLORIDE
     Indication: Varices oesophageal
     Dosage: UNIT DOSE : 140 MG , FREQUENCY TIME : 1 DAYS , THERAPY START DATE : ASKU
     Route: 048

REACTIONS (1)
  - Pyrexia [Fatal]

NARRATIVE: CASE EVENT DATE: 20220423
